FAERS Safety Report 26168477 (Version 1)
Quarter: 2025Q4

REPORT INFORMATION
  Report Type: Spontaneous
  Country: EU (occurrence: EU)
  Receive Date: 20251217
  Receipt Date: 20251217
  Transmission Date: 20260117
  Serious: Yes (Death, Other)
  Sender: BRISTOL-MYERS SQUIBB COMPANY
  Company Number: None

PATIENT
  Age: 85 Year
  Sex: Male
  Weight: 97 kg

DRUGS (1)
  1. LENALIDOMIDE [Suspect]
     Active Substance: LENALIDOMIDE
     Indication: Diffuse large B-cell lymphoma
     Dosage: NOT SPECIFIED
     Route: 048
     Dates: start: 202412, end: 20250314

REACTIONS (2)
  - Dermatitis exfoliative generalised [Fatal]
  - Dehydration [Fatal]

NARRATIVE: CASE EVENT DATE: 20250314
